FAERS Safety Report 7618907-0 (Version None)
Quarter: 2011Q3

REPORT INFORMATION
  Report Type: 
  Country: None (occurrence: None)
  Receive Date: 20110718
  Receipt Date: 20110712
  Transmission Date: 20111222
  Serious: Yes (Other)
  Sender: FDA-Public Use
  Company Number: US-PFIZER INC-2011158265

PATIENT
  Sex: Female
  Weight: 88 kg

DRUGS (3)
  1. GLUCOTROL [Suspect]
     Indication: DIABETES MELLITUS
     Dosage: 10 MG, 2X/DAY
     Route: 048
  2. GLUCOPHAGE [Suspect]
     Indication: DIABETES MELLITUS
     Dosage: 500 MG, 2X/DAY
     Route: 048
     Dates: start: 20110301
  3. LISINOPRIL [Suspect]
     Indication: BLOOD PRESSURE ABNORMAL
     Dosage: 20 MG, DAILY
     Route: 048
     Dates: start: 20050101

REACTIONS (10)
  - VISION BLURRED [None]
  - HYPOAESTHESIA ORAL [None]
  - NAUSEA [None]
  - PRURITUS [None]
  - ASTHENIA [None]
  - BONE DISORDER [None]
  - FACIAL PARESIS [None]
  - FATIGUE [None]
  - DIZZINESS [None]
  - HEADACHE [None]
